FAERS Safety Report 15549024 (Version 1)
Quarter: 2018Q4

REPORT INFORMATION
  Report Type: Spontaneous
  Country: JP (occurrence: JP)
  Receive Date: 20181025
  Receipt Date: 20181025
  Transmission Date: 20190205
  Serious: Yes (Other)
  Sender: FDA-Public Use
  Company Number: JP-AMEL-2018-05318AA

PATIENT
  Age: 46 Year
  Sex: Male

DRUGS (3)
  1. ANCOTIL 500 MG TABLET [Suspect]
     Active Substance: FLUCYTOSINE
     Dosage: UNK
     Route: 065
  2. GAMMA GLOBULIN [Concomitant]
     Active Substance: IMMUNE GLOBULIN NOS
     Indication: MENINGITIS CRYPTOCOCCAL
     Dosage: UNK
     Route: 042
  3. AMBISOME [Concomitant]
     Active Substance: AMPHOTERICIN B
     Indication: MENINGITIS CRYPTOCOCCAL
     Dosage: UNK
     Route: 065

REACTIONS (1)
  - Bone marrow failure [Recovering/Resolving]
